FAERS Safety Report 13425879 (Version 2)
Quarter: 2017Q2

REPORT INFORMATION
  Report Type: Report from Study
  Country: MX (occurrence: MX)
  Receive Date: 20170411
  Receipt Date: 20170417
  Transmission Date: 20170830
  Serious: Yes (Other)
  Sender: FDA-Public Use
  Company Number: MX-UCBSA-2017013567

PATIENT
  Age: 2 Day
  Sex: Male
  Weight: 6 kg

DRUGS (9)
  1. LEVETIRACETAM. [Suspect]
     Active Substance: LEVETIRACETAM
     Dosage: 1.7 ML, 2X/DAY (BID)
     Route: 048
     Dates: start: 20170401
  2. LEVETIRACETAM. [Suspect]
     Active Substance: LEVETIRACETAM
     Indication: INFANTILE SPASMS
     Dosage: 0.9 ML, 2X/DAY (BID)
     Route: 048
     Dates: start: 20161031, end: 201702
  3. VIMPAT [Suspect]
     Active Substance: LACOSAMIDE
     Indication: INFANTILE SPASMS
     Dosage: 10 MG/ML
     Route: 048
     Dates: start: 201611, end: 201611
  4. LEVETIRACETAM. [Suspect]
     Active Substance: LEVETIRACETAM
     Dosage: 1.4 ML, 2X/DAY (BID)
     Route: 048
     Dates: start: 2017, end: 2017
  5. VIMPAT [Suspect]
     Active Substance: LACOSAMIDE
     Dosage: 1.3 ML, 2X/DAY (BID)
     Route: 048
     Dates: start: 201702, end: 2017
  6. PROPAFENONE. [Concomitant]
     Active Substance: PROPAFENONE
     Indication: TACHYCARDIA
     Dosage: 0.18G/8HRS
     Dates: start: 20161104
  7. BIOGAIA [Concomitant]
     Active Substance: LACTOBACILLUS REUTERI
     Indication: CONSTIPATION
     Dosage: 5 DROPS/24HRS
     Dates: start: 201611
  8. VIMPAT [Suspect]
     Active Substance: LACOSAMIDE
     Dosage: 1 ML/8 HRS
     Route: 048
     Dates: start: 20170401
  9. VIMPAT [Suspect]
     Active Substance: LACOSAMIDE
     Dosage: 1.2 ML, 2X/DAY (BID)
     Route: 048
     Dates: start: 20161128, end: 201702

REACTIONS (3)
  - Tachycardia [Recovered/Resolved]
  - Constipation [Unknown]
  - Off label use [Unknown]

NARRATIVE: CASE EVENT DATE: 20161031
